FAERS Safety Report 15634589 (Version 1)
Quarter: 2018Q4

REPORT INFORMATION
  Report Type: Spontaneous
  Country: US (occurrence: US)
  Receive Date: 20181118
  Receipt Date: 20181118
  Transmission Date: 20190205
  Serious: Yes (Death, Life-Threatening, Hospitalization)
  Sender: FDA-Public Use
  Company Number: None

PATIENT
  Age: 62 Year

DRUGS (1)
  1. TIZANADINE [Suspect]
     Active Substance: TIZANIDINE

REACTIONS (1)
  - Drug dependence [None]

NARRATIVE: CASE EVENT DATE: 20181117
